FAERS Safety Report 4325061-X (Version None)
Quarter: 2004Q1

REPORT INFORMATION
  Report Type: 
  Country: None (occurrence: None)
  Receive Date: 20040323
  Receipt Date: 20040309
  Transmission Date: 20041129
  Serious: Yes (Death, Hospitalization, Other)
  Sender: FDA-Public Use
  Company Number: 2004016738

PATIENT
  Age: 62 Year
  Sex: Male

DRUGS (1)
  1. NORVASC [Suspect]
     Indication: HYPERTENSION
     Dosage: DAILY, ORAL
     Route: 048
     Dates: start: 19941101, end: 19950501

REACTIONS (4)
  - ASTHENIA [None]
  - LUNG NEOPLASM MALIGNANT [None]
  - METASTASES TO BONE [None]
  - SWELLING [None]
